FAERS Safety Report 18312449 (Version 1)
Quarter: 2020Q3

REPORT INFORMATION
  Report Type: Spontaneous
  Country: US (occurrence: US)
  Receive Date: 20200924
  Receipt Date: 20200924
  Transmission Date: 20201103
  Serious: No
  Sender: FDA-Public Use
  Company Number: None

PATIENT
  Age: 60 Year
  Sex: Male
  Weight: 101 kg

DRUGS (2)
  1. LISINOPRIL (LISINOPRIL 40MG TAB) [Suspect]
     Active Substance: LISINOPRIL
     Indication: DIABETES MELLITUS
     Route: 048
     Dates: start: 20180919, end: 20200605
  2. LISINOPRIL (LISINOPRIL 40MG TAB) [Suspect]
     Active Substance: LISINOPRIL
     Indication: HYPERTENSION
     Route: 048
     Dates: start: 20180919, end: 20200605

REACTIONS (1)
  - Angioedema [None]

NARRATIVE: CASE EVENT DATE: 20200605
